FAERS Safety Report 12217203 (Version 1)
Quarter: 2016Q1

REPORT INFORMATION
  Report Type: Spontaneous
  Country: US (occurrence: None)
  Receive Date: 20160328
  Receipt Date: 20160328
  Transmission Date: 20160526
  Serious: Yes (Other)
  Sender: FDA-Public Use
  Company Number: None

PATIENT
  Age: 49 Year
  Sex: Female

DRUGS (1)
  1. HUMIRA [Suspect]
     Active Substance: ADALIMUMAB
     Indication: PSORIASIS
     Dosage: SHIPPED ON 2/22/2016??EVERY OTHER WK??INJECTABLE
     Route: 058
     Dates: start: 20160222

REACTIONS (1)
  - Fatigue [None]

NARRATIVE: CASE EVENT DATE: 20160325
